FAERS Safety Report 7586233-4 (Version None)
Quarter: 2011Q3

REPORT INFORMATION
  Report Type: 
  Country: None (occurrence: None)
  Receive Date: 20110701
  Receipt Date: 20110629
  Transmission Date: 20111222
  Serious: Yes (Death)
  Sender: FDA-Public Use
  Company Number: US-SANOFI-AVENTIS-2011SA041502

PATIENT
  Age: 81 Year
  Sex: Female

DRUGS (8)
  1. COUMADIN [Concomitant]
     Dates: end: 20110629
  2. GABAPENTIN [Concomitant]
  3. TRAMADOL HCL [Concomitant]
  4. LANTUS [Concomitant]
  5. LASIX [Concomitant]
  6. MULTAQ [Suspect]
     Route: 048
     Dates: start: 20110627, end: 20110629
  7. ZOFRAN [Concomitant]
  8. NITROGLYCERIN [Concomitant]

REACTIONS (2)
  - ARRHYTHMIA [None]
  - SUDDEN DEATH [None]
